FAERS Safety Report 10200639 (Version 1)
Quarter: 2014Q2

REPORT INFORMATION
  Report Type: Spontaneous
  Country: US (occurrence: US)
  Receive Date: 20140528
  Receipt Date: 20140528
  Transmission Date: 20141212
  Serious: No
  Sender: FDA-Public Use
  Company Number: US-B.I. PHARMACEUTICALS,INC./RIDGEFIELD-2014-BI-21957BP

PATIENT
  Age: 38 Year
  Sex: Female
  Weight: 118 kg

DRUGS (5)
  1. DULCOGAS WILD BERRY [Suspect]
     Indication: ABDOMINAL DISTENSION
     Route: 048
     Dates: start: 20140507
  2. IRON SUPPLIMENT [Concomitant]
     Indication: MINERAL SUPPLEMENTATION
     Dosage: 45 MG
     Route: 048
  3. LEVOTHYROXINE [Concomitant]
     Indication: HYPOTHYROIDISM
     Dosage: 100 MCG
     Route: 048
  4. PREDNISONE [Concomitant]
     Indication: HYPERSENSITIVITY
     Route: 048
  5. OMEPRAZOLE [Concomitant]
     Indication: GASTROOESOPHAGEAL REFLUX DISEASE
     Dosage: 40 MG
     Route: 048

REACTIONS (1)
  - Tooth discolouration [Not Recovered/Not Resolved]
